FAERS Safety Report 24252135 (Version 3)
Quarter: 2025Q1

REPORT INFORMATION
  Report Type: Report from Study
  Country: FR (occurrence: FR)
  Receive Date: 20240827
  Receipt Date: 20250205
  Transmission Date: 20250409
  Serious: Yes (Congenital Anomaly, Other)
  Sender: AUROBINDO
  Company Number: FR-GLAXOSMITHKLINE-FR2024GSK098997

PATIENT

DRUGS (3)
  1. VALACYCLOVIR HYDROCHLORIDE [Suspect]
     Active Substance: VALACYCLOVIR HYDROCHLORIDE
     Indication: Cytomegalovirus infection
     Route: 064
  2. VALGANCICLOVIR [Suspect]
     Active Substance: VALGANCICLOVIR
     Indication: Cytomegalovirus infection
     Dosage: 450 MILLIGRAM, 3 TIMES A DAY
     Route: 064
     Dates: start: 202101
  3. VALGANCICLOVIR [Suspect]
     Active Substance: VALGANCICLOVIR
     Indication: Congenital cytomegalovirus infection

REACTIONS (12)
  - Deafness congenital [Unknown]
  - Thrombocytopenia [Unknown]
  - Neonatal hepatomegaly [Unknown]
  - Hyperbilirubinaemia [Unknown]
  - Hepatosplenomegaly neonatal [Unknown]
  - Hypotonia neonatal [Unknown]
  - Anaemia [Recovered/Resolved]
  - Petechiae [Unknown]
  - Cell death [Unknown]
  - Cerebral ventricle dilatation [Unknown]
  - Subependymal cyst [Unknown]
  - Foetal exposure during pregnancy [Recovered/Resolved]
